FAERS Safety Report 14173199 (Version 1)
Quarter: 2017Q4

REPORT INFORMATION
  Report Type: Spontaneous
  Country: US (occurrence: None)
  Receive Date: 20171108
  Receipt Date: 20171108
  Transmission Date: 20180321
  Serious: Yes (Death)
  Sender: FDA-Public Use
  Company Number: None

PATIENT
  Age: 75 Year
  Sex: Female

DRUGS (1)
  1. IBRANCE [Suspect]
     Active Substance: PALBOCICLIB
     Indication: PRODUCT USED FOR UNKNOWN INDICATION
     Dosage: 125MG TAKE 1 CAP DAILY FOR 21 DAYS OF 28 DAYS CYCLE ORALLY
     Route: 048
     Dates: start: 20170905, end: 20171102

REACTIONS (1)
  - Death [None]

NARRATIVE: CASE EVENT DATE: 20171102
